FAERS Safety Report 4753324-2 (Version None)
Quarter: 2005Q3

REPORT INFORMATION
  Report Type: 
  Country: None (occurrence: None)
  Receive Date: 20050826
  Receipt Date: 20050823
  Transmission Date: 20060218
  Serious: Yes (Death)
  Sender: FDA-Public Use
  Company Number: 2005SE04802

PATIENT
  Age: 14264 Day
  Sex: Male

DRUGS (4)
  1. SEROQUEL [Suspect]
     Route: 048
     Dates: start: 20041027
  2. CISORDINOL [Concomitant]
     Dates: start: 20011220
  3. ZOLOFT [Concomitant]
     Dates: start: 20021230
  4. DISIPAL [Concomitant]
     Dates: start: 20011220

REACTIONS (2)
  - ACUTE MYOCARDIAL INFARCTION [None]
  - SUDDEN DEATH [None]
